FAERS Safety Report 5092744-6 (Version None)
Quarter: 2006Q3

REPORT INFORMATION
  Report Type: 
  Country: None (occurrence: None)
  Receive Date: 20060727
  Receipt Date: 20060607
  Transmission Date: 20061208
  Serious: Yes (Other)
  Sender: FDA-Public Use
  Company Number: 2006073090

PATIENT
  Sex: Female

DRUGS (3)
  1. LYRICA [Suspect]
     Indication: SCIATICA
     Dosage: 150 MG (75 MG, 2 IN 1 D)
     Dates: start: 20060606
  2. HYDROCHLOROTHIAZIDE [Concomitant]
  3. ZETIA [Concomitant]

REACTIONS (1)
  - SOMNOLENCE [None]
